FAERS Safety Report 10003320 (Version 2)
Quarter: 2014Q1

REPORT INFORMATION
  Report Type: Spontaneous
  Country: US (occurrence: US)
  Receive Date: 20140312
  Receipt Date: 20140312
  Transmission Date: 20141002
  Serious: No
  Sender: FDA-Public Use
  Company Number: US-GILEAD-2012-0056834

PATIENT
  Sex: Male

DRUGS (5)
  1. LETAIRIS [Suspect]
     Indication: PULMONARY HYPERTENSION
     Dosage: 5 MG, UNK
     Route: 048
     Dates: start: 20120611
  2. LETAIRIS [Suspect]
     Indication: SLEEP APNOEA SYNDROME
  3. TYVASO [Suspect]
  4. LOSARTAN [Suspect]
     Indication: PULMONARY HYPERTENSION
  5. LOSARTAN [Suspect]
     Indication: SLEEP APNOEA SYNDROME

REACTIONS (2)
  - Hypotension [Unknown]
  - Headache [Unknown]
